FAERS Safety Report 13060842 (Version 1)
Quarter: 2016Q4

REPORT INFORMATION
  Report Type: Spontaneous
  Country: US (occurrence: US)
  Receive Date: 20161225
  Receipt Date: 20161225
  Transmission Date: 20170207
  Serious: Yes (Other)
  Sender: FDA-Public Use
  Company Number: US-ABBVIE-16K-163-1756019-00

PATIENT
  Age: 77 Year
  Sex: Male
  Weight: 97.61 kg

DRUGS (2)
  1. CLOBETASOL [Concomitant]
     Active Substance: CLOBETASOL
     Indication: PSORIASIS
  2. HUMIRA [Suspect]
     Active Substance: ADALIMUMAB
     Indication: PSORIASIS
     Route: 058
     Dates: start: 20160302, end: 201608

REACTIONS (3)
  - Appendicitis [Recovered/Resolved]
  - Renal cancer [Unknown]
  - Renal mass [Recovered/Resolved]

NARRATIVE: CASE EVENT DATE: 201608
